FAERS Safety Report 10438732 (Version 1)
Quarter: 2014Q3

REPORT INFORMATION
  Report Type: Spontaneous
  Country: DE (occurrence: None)
  Receive Date: 20140904
  Receipt Date: 20140904
  Transmission Date: 20150326
  Serious: Yes (Other)
  Sender: FDA-Public Use
  Company Number: ABR_01794_2014

PATIENT
  Age: 55 Year
  Sex: Female

DRUGS (2)
  1. TENIPOSIDE. [Suspect]
     Active Substance: TENIPOSIDE
     Indication: GLIOBLASTOMA
     Dosage: ([145-60 MG/M^2, DAYS 1-3/42; 4 CYCLES]
  2. CARMUSTINE [Suspect]
     Active Substance: CARMUSTINE
     Indication: GLIOBLASTOMA
     Dosage: ([130-150 MG/M^2, DAY 1/42; 4 CYCLES]
     Route: 042

REACTIONS (1)
  - Haematotoxicity [None]
